FAERS Safety Report 19472992 (Version 5)
Quarter: 2021Q4

REPORT INFORMATION
  Report Type: Report from Study
  Country: CR (occurrence: CR)
  Receive Date: 20210629
  Receipt Date: 20211228
  Transmission Date: 20220303
  Serious: Yes (Hospitalization, Other)
  Sender: FDA-Public Use
  Company Number: CR-ABBVIE-21K-039-3967628-00

PATIENT
  Age: 42 Year
  Sex: Male
  Weight: 60 kg

DRUGS (3)
  1. HUMIRA [Suspect]
     Active Substance: ADALIMUMAB
     Indication: Crohn^s disease
     Route: 058
     Dates: start: 20140519, end: 20210901
  2. PENTASA [Concomitant]
     Active Substance: MESALAMINE
     Indication: Crohn^s disease
     Route: 048
     Dates: start: 2014
  3. AZATHIOPRINE [Concomitant]
     Active Substance: AZATHIOPRINE
     Indication: Crohn^s disease
     Route: 048
     Dates: start: 2014

REACTIONS (14)
  - Ileal ulcer [Recovering/Resolving]
  - Gastrointestinal disorder [Recovering/Resolving]
  - Crohn^s disease [Not Recovered/Not Resolved]
  - Gastrointestinal infection [Not Recovered/Not Resolved]
  - Gastrointestinal stenosis [Unknown]
  - Enteritis [Recovering/Resolving]
  - Enteral nutrition [Unknown]
  - Intra-abdominal fluid collection [Unknown]
  - Ileal stenosis [Unknown]
  - Ileostomy [Unknown]
  - Muscle disorder [Recovering/Resolving]
  - Arthralgia [Recovering/Resolving]
  - Illness [Recovering/Resolving]
  - Drug ineffective [Recovering/Resolving]

NARRATIVE: CASE EVENT DATE: 20210501
